FAERS Safety Report 9505383 (Version 1)
Quarter: 2013Q1

REPORT INFORMATION
  Report Type: Spontaneous
  Country: US (occurrence: None)
  Receive Date: 20130220
  Receipt Date: 20130220
  Transmission Date: 20140127
  Serious: No
  Sender: FDA-Public Use
  Company Number: 1000040166

PATIENT
  Age: 44 Year
  Sex: Female

DRUGS (5)
  1. VIIBYRD (VILAZODONE HYDROCHLORIDE) (10 MILLIGRAM, TABLETS) [Suspect]
     Indication: DEPRESSION
     Dosage: 10 MG (10 MG, 1 IN 1 D), ORAL
     Route: 048
     Dates: start: 2012, end: 2012
  2. CYMBALTA (DULOXETINE HYDROCHLORIDE) (DULOXETINE HYDROCHLORIDE) [Concomitant]
  3. AMBIEN (ZOLPIDEM TARTRATE) (ZOLPIDEM TARTRATE) [Concomitant]
  4. ATIVAN (LORAZEPAM) (LORAZEPAM) [Concomitant]
  5. DEPLIN (CALCIUM LEVOMEFOLATE) (CALCIUM LEVOMEFOLATE) [Concomitant]

REACTIONS (1)
  - Acne [None]
